FAERS Safety Report 9131311 (Version 4)
Quarter: 2013Q2

REPORT INFORMATION
  Report Type: Spontaneous
  Country: US (occurrence: US)
  Receive Date: 20130301
  Receipt Date: 20130516
  Transmission Date: 20140414
  Serious: Yes (Hospitalization, Other)
  Sender: FDA-Public Use
  Company Number: US-ASTELLAS-2013US002162

PATIENT
  Age: 56 Year
  Sex: Male

DRUGS (9)
  1. MYRBETRIQ [Suspect]
     Indication: HYPERTONIC BLADDER
     Dosage: 25 MG, UID/QD
     Route: 048
     Dates: start: 201211, end: 201302
  2. MYRBETRIQ [Interacting]
     Indication: MICTURITION URGENCY
     Dosage: 25 MG, UID/QD
     Route: 048
     Dates: start: 20121214, end: 20130206
  3. MYRBETRIQ [Interacting]
     Dosage: 25 MG, UID/QD
     Route: 048
     Dates: start: 20130208, end: 20130314
  4. MYRBETRIQ [Interacting]
     Dosage: 50 MG, UID/QD
     Route: 048
     Dates: start: 20130218
  5. MYRBETRIQ [Interacting]
     Dosage: 50 MG, UID/QD
     Route: 048
  6. PREDNISONE [Interacting]
     Indication: PRODUCT USED FOR UNKNOWN INDICATION
     Dosage: UNK
     Route: 065
  7. FLEXERIL                           /00428402/ [Concomitant]
     Indication: PRODUCT USED FOR UNKNOWN INDICATION
     Dosage: UNK
     Route: 065
  8. LYRICA [Concomitant]
     Indication: PRODUCT USED FOR UNKNOWN INDICATION
     Dosage: UNK
     Route: 065
  9. NUCYNTA [Concomitant]
     Indication: PRODUCT USED FOR UNKNOWN INDICATION
     Dosage: UNK
     Route: 065

REACTIONS (4)
  - Drug ineffective [Unknown]
  - Hypersensitivity [Unknown]
  - Medical device implantation [Unknown]
  - Drug interaction [Unknown]
